FAERS Safety Report 4748211-X (Version None)
Quarter: 2005Q3

REPORT INFORMATION
  Report Type: 
  Country: None (occurrence: None)
  Receive Date: 20050818
  Receipt Date: 20050808
  Transmission Date: 20060218
  Serious: Yes (Other)
  Sender: FDA-Public Use
  Company Number: NL-BRISTOL-MYERS SQUIBB COMPANY-13073358

PATIENT
  Age: 50 Year
  Sex: Male

DRUGS (4)
  1. METFORMIN HCL [Suspect]
     Indication: DIABETES MELLITUS
     Route: 048
     Dates: start: 20050113, end: 20050210
  2. INSULIN [Concomitant]
     Indication: DIABETES MELLITUS
     Route: 058
  3. CRESTOR [Concomitant]
     Route: 048
  4. LISINOPRIL AND HYDROCHLOROTHIAZIDE [Concomitant]
     Dosage: 20/12.5MG
     Route: 048

REACTIONS (1)
  - TOOTH DISORDER [None]
